FAERS Safety Report 4371040-6 (Version None)
Quarter: 2004Q2

REPORT INFORMATION
  Report Type: 
  Country: None (occurrence: None)
  Receive Date: 20040604
  Receipt Date: 20040527
  Transmission Date: 20050107
  Serious: Yes (Other)
  Sender: FDA-Public Use
  Company Number: US-MERCK-0405USA02098

PATIENT
  Sex: Female

DRUGS (4)
  1. [THERAPY UNSPECIFIED] [Concomitant]
     Route: 065
  2. FOSAMAX [Suspect]
     Indication: OSTEOPOROSIS
     Route: 048
     Dates: start: 19950101
  3. FOSAMAX [Suspect]
     Route: 048
  4. VIOXX [Concomitant]
     Route: 048

REACTIONS (3)
  - BREAST CANCER [None]
  - NAIL DISORDER [None]
  - PHARMACEUTICAL PRODUCT COMPLAINT [None]
